FAERS Safety Report 23787698 (Version 1)
Quarter: 2024Q2

REPORT INFORMATION
  Report Type: Spontaneous
  Country: CN (occurrence: CN)
  Receive Date: 20240426
  Receipt Date: 20240426
  Transmission Date: 20240715
  Serious: Yes (Hospitalization, Other)
  Sender: FDA-Public Use
  Company Number: CN-009507513-2404CHN010037

PATIENT
  Age: 73 Year
  Sex: Male

DRUGS (1)
  1. CILASTATIN SODIUM\IMIPENEM [Suspect]
     Active Substance: CILASTATIN SODIUM\IMIPENEM
     Indication: Pneumonia
     Dosage: 0.5 GRAM, BID
     Route: 041
     Dates: start: 20240404, end: 20240412

REACTIONS (7)
  - Mental disorder [Recovering/Resolving]
  - Soliloquy [Recovering/Resolving]
  - Hallucination [Recovering/Resolving]
  - Unresponsive to stimuli [Recovering/Resolving]
  - Hypoaesthesia [Unknown]
  - Breath sounds abnormal [Unknown]
  - Neurological examination abnormal [Unknown]

NARRATIVE: CASE EVENT DATE: 20240412
